FAERS Safety Report 17334923 (Version 1)
Quarter: 2020Q1

REPORT INFORMATION
  Report Type: Spontaneous
  Country: US (occurrence: US)
  Receive Date: 20200128
  Receipt Date: 20200128
  Transmission Date: 20200409
  Serious: No
  Sender: FDA-Public Use
  Company Number: US-ENDO PHARMACEUTICALS INC-2019-109053

PATIENT
  Sex: Female

DRUGS (1)
  1. RHEUMATREX [Suspect]
     Active Substance: METHOTREXATE SODIUM
     Indication: MORPHOEA
     Dosage: 25MG, (10-2.5MG TABLETS) WEEKLY
     Route: 065

REACTIONS (3)
  - Condition aggravated [Unknown]
  - Morphoea [Unknown]
  - Off label use [Unknown]
